FAERS Safety Report 16736063 (Version 2)
Quarter: 2019Q4

REPORT INFORMATION
  Report Type: Spontaneous
  Country: US (occurrence: US)
  Receive Date: 20190823
  Receipt Date: 20191002
  Transmission Date: 20200122
  Serious: Yes (Hospitalization)
  Sender: FDA-Public Use
  Company Number: PHEH2019US034517

PATIENT
  Age: 18 Year
  Sex: Male

DRUGS (1)
  1. KYMRIAH [Suspect]
     Active Substance: TISAGENLECLEUCEL
     Indication: ACUTE LYMPHOCYTIC LEUKAEMIA
     Dosage: UNK UNK, ONCE/SINGLE
     Route: 042
     Dates: start: 20190729, end: 20190729

REACTIONS (7)
  - Lung disorder [Not Recovered/Not Resolved]
  - Capillary leak syndrome [Unknown]
  - Hypotension [Recovered/Resolved]
  - Serum ferritin increased [Recovering/Resolving]
  - Hypoxia [Unknown]
  - Pyrexia [Recovering/Resolving]
  - Cytokine release syndrome [Recovering/Resolving]

NARRATIVE: CASE EVENT DATE: 20190801
